FAERS Safety Report 5204439-6 (Version None)
Quarter: 2007Q1

REPORT INFORMATION
  Report Type: 
  Country: None (occurrence: None)
  Receive Date: 20070105
  Receipt Date: 20070103
  Transmission Date: 20070707
  Serious: Yes (Death, Hospitalization)
  Sender: FDA-Public Use
  Company Number: 151435USA

PATIENT
  Age: 63 Year
  Sex: Male

DRUGS (2)
  1. COPAXONE [Suspect]
     Dosage: (20 MG), SUBCUTANEOUS
     Route: 058
  2. INTERFERON BETA [Suspect]
     Dosage: (30 MCG, 1 IN 1 WK), INTRAMUSCULAR
     Route: 030
     Dates: start: 20030601, end: 20060301

REACTIONS (1)
  - CARDIAC ARREST [None]
